FAERS Safety Report 4396589-1 (Version None)
Quarter: 2004Q3

REPORT INFORMATION
  Report Type: 
  Country: None (occurrence: None)
  Receive Date: 20040712
  Receipt Date: 20040623
  Transmission Date: 20050211
  Serious: Yes (Hospitalization)
  Sender: FDA-Public Use
  Company Number: DSA_24595_2004

PATIENT
  Age: 37 Year
  Sex: Male

DRUGS (2)
  1. LORAZEPAM [Suspect]
     Dosage: 50 MG ONCE PO
     Route: 048
     Dates: start: 20040617, end: 20040617
  2. DOXEPIN HCL [Suspect]
     Dosage: 250 MG ONCE PO
     Route: 048
     Dates: start: 20040617, end: 20040617

REACTIONS (3)
  - BOWEL SOUNDS ABNORMAL [None]
  - FATIGUE [None]
  - MULTIPLE DRUG OVERDOSE INTENTIONAL [None]
